FAERS Safety Report 9167322 (Version 1)
Quarter: 2013Q1

REPORT INFORMATION
  Report Type: Spontaneous
  Country: US (occurrence: None)
  Receive Date: 20130314
  Receipt Date: 20130314
  Transmission Date: 20140127
  Serious: Yes (Life-Threatening, Hospitalization, Other)
  Sender: FDA-Public Use
  Company Number: None

PATIENT
  Age: 44 Year
  Sex: Male
  Weight: 100.25 kg

DRUGS (1)
  1. DEPAKOTE [Suspect]
     Indication: DEPRESSION
     Dosage: ER MG  500 MG MOUTH TWICE ?1000 MG DEPAKOTE INCREASED ?12/4-5/12 INCREASED FROM 500 TO 1000 MG

REACTIONS (11)
  - Renal failure [None]
  - Coma [None]
  - Neuroleptic malignant syndrome [None]
  - Pneumonia [None]
  - Dry mouth [None]
  - Lip dry [None]
  - Tongue dry [None]
  - Alopecia [None]
  - Rhabdomyolysis [None]
  - Dyspnoea [None]
  - Drug prescribing error [None]
